FAERS Safety Report 8728798 (Version 2)
Quarter: 2012Q4

REPORT INFORMATION
  Report Type: 
  Country: NL (occurrence: NL)
  Receive Date: 20120817
  Receipt Date: 20121228
  Transmission Date: 20130627
  Serious: Yes (Hospitalization)
  Sender: FDA-Public Use
  Company Number: NL-PFIZER INC-2012197452

PATIENT
  Age: 62 Year
  Sex: Female
  Weight: 85 kg

DRUGS (14)
  1. GENOTROPIN [Suspect]
     Indication: GROWTH HORMONE DEFICIENCY
     Dosage: UNK
     Dates: start: 1993, end: 1993
  2. GENOTROPIN [Suspect]
     Dosage: UNK
     Dates: start: 1997
  3. GENOTROPIN [Suspect]
     Dosage: 0.2 mg, 7/wk
     Route: 058
     Dates: start: 20021211
  4. SALBUTAMOL [Concomitant]
     Dosage: UNK
     Dates: start: 19951012
  5. CINNARIZINE [Concomitant]
     Dosage: UNK
     Dates: start: 19951012
  6. ESTROGEN NOS [Concomitant]
     Indication: BLOOD LUTEINISING HORMONE DECREASED
     Dosage: UNK
     Dates: start: 19960615
  7. ESTROGEN NOS [Concomitant]
     Indication: BLOOD FOLLICLE STIMULATING HORMONE DECREASED
  8. ESTROGEN NOS [Concomitant]
     Indication: HYPOGONADISM FEMALE
  9. DECA-DURABOLIN [Concomitant]
     Indication: DEBILITY
     Dosage: UNK
     Dates: start: 19960715
  10. DECA-DURABOLIN [Concomitant]
     Indication: FATIGUE
  11. LEVOTHYROXINE [Concomitant]
     Indication: BLOOD THYROID STIMULATING HORMONE DECREASED
     Dosage: UNK
     Dates: start: 19930701
  12. LEVOTHYROXINE [Concomitant]
     Indication: PRIMARY HYPOTHYROIDISM
  13. DIAZEPAM [Concomitant]
     Indication: DEPRESSION
     Dosage: UNK
     Dates: start: 19950701
  14. DIAZEPAM [Concomitant]
     Indication: INSOMNIA

REACTIONS (1)
  - Diarrhoea [Unknown]
